FAERS Safety Report 8240380-2 (Version None)
Quarter: 2012Q1

REPORT INFORMATION
  Report Type: 
  Country: None (occurrence: None)
  Receive Date: 20120328
  Receipt Date: 20120322
  Transmission Date: 20120608
  Serious: Yes (Other)
  Sender: FDA-Public Use
  Company Number: US-PFIZER INC-2012075837

PATIENT
  Sex: Female

DRUGS (20)
  1. GLUCOTROL XL [Suspect]
     Dosage: 5 MG (1 TABLET), 2X/DAY
     Route: 048
  2. CLARINEX [Concomitant]
     Indication: RHINITIS SEASONAL
     Dosage: 5 MG (1 TABLET), DAILY
     Route: 048
  3. BONIVA [Concomitant]
     Indication: OSTEOPOROSIS POSTMENOPAUSAL
     Dosage: 150 MG (1 TABLET), EVERY 30 DAYS
     Route: 048
  4. SYNTHROID [Concomitant]
     Indication: HYPOTHYROIDISM
     Dosage: 225 UG (1.5 TABLETS), 3 DAYS A WEEK AND 150 UG (1 TABLET) ALL OTHER DAYS
  5. ACCUPRIL [Suspect]
     Dosage: 20 MG (1 TABLET), 1X/DAY (DAILY)
     Route: 048
  6. JANUVIA [Concomitant]
     Dosage: 100 MG, DAILY
     Route: 048
  7. LIPITOR [Suspect]
     Dosage: 80 MG, 1X/DAY
     Route: 048
  8. PRILOSEC [Concomitant]
     Dosage: 20 MG (1 CAPSULE), DAILY
     Route: 048
  9. ZOLOFT [Suspect]
     Dosage: 100 MG (2 TABLETS OF 50 MG), NIGHTLY (QHS)
     Route: 048
  10. CALCIUM CARBONATE [Concomitant]
     Indication: OSTEOPOROSIS
     Dosage: 600 MG (1500 MG) 1 TABLET, 2X/DAY (WITH MEALS)
     Route: 048
  11. VITAMIN D [Concomitant]
     Dosage: 4000 UNITS, DAILY
     Route: 048
  12. LIRAGLUTIDE (NN2211) [Concomitant]
     Indication: TYPE 2 DIABETES MELLITUS
     Dosage: 1.8 UG, DAILY
  13. WELCHOL [Concomitant]
     Indication: ALVEOLAR PROTEINOSIS
     Dosage: 1250 MG (2 TABLETS OF 625 MG) (WITH MEALS)
     Route: 048
  14. ZOLOFT [Suspect]
     Dosage: 100 MG (1 TABLET OF 100 MG), NIGHTLY
     Route: 048
  15. VITAMIN B-12 [Concomitant]
     Dosage: 2500 UG (1 TABLET), DAILY
     Route: 060
  16. LANTUS [Concomitant]
     Dosage: 100 UNIT/ML, 90 UNITS, NIGHTLY
     Route: 058
  17. ALDACTONE [Suspect]
     Dosage: 25 MG (0.5 TABLET OF 50 MG), 2X/DAY
     Route: 048
  18. DETROL LA [Suspect]
     Dosage: 4 MG (1 CAPSULE), 1X/DAY (DAILY)
     Route: 048
  19. INSULIN ASPART [Concomitant]
     Dosage: 12 UNITS, 3X/DAY (BEFORE MEALS)
     Route: 058
  20. INSULIN [Concomitant]
     Dosage: 1 ML, NIGHTLY
     Route: 058

REACTIONS (16)
  - RENAL FAILURE [None]
  - BACK PAIN [None]
  - BLOOD CHOLESTEROL INCREASED [None]
  - OSTEOPENIA [None]
  - GASTROOESOPHAGEAL REFLUX DISEASE [None]
  - VITAMIN D DEFICIENCY [None]
  - OEDEMA [None]
  - HYPERTONIC BLADDER [None]
  - MUSCULOSKELETAL PAIN [None]
  - DIABETES MELLITUS INADEQUATE CONTROL [None]
  - HYPOTHYROIDISM [None]
  - RHINITIS ALLERGIC [None]
  - SNORING [None]
  - ESSENTIAL HYPERTENSION [None]
  - DEPRESSION [None]
  - VITAMIN B12 DEFICIENCY [None]
